FAERS Safety Report 10219185 (Version 1)
Quarter: 2014Q2

REPORT INFORMATION
  Report Type: Spontaneous
  Country: US (occurrence: US)
  Receive Date: 20140605
  Receipt Date: 20140605
  Transmission Date: 20141212
  Serious: Yes (Hospitalization)
  Sender: FDA-Public Use
  Company Number: US-ASTRAZENECA-2014SE37159

PATIENT
  Age: 68 Year
  Sex: Female
  Weight: 53.1 kg

DRUGS (6)
  1. SYMBICORT [Suspect]
     Indication: ALPHA-1 ANTI-TRYPSIN DEFICIENCY
     Dosage: 2 PUFFS BID
     Route: 055
     Dates: start: 201304
  2. LISINOPRIL [Suspect]
     Indication: BLOOD PRESSURE ABNORMAL
     Dosage: HALF OF A 10-12.5 MG DAILY
     Route: 048
     Dates: start: 2004
  3. SPIRIVA [Concomitant]
     Indication: ALPHA-1 ANTI-TRYPSIN DEFICIENCY
     Dosage: 2 PUFFS DAILY
     Route: 055
     Dates: start: 201301
  4. PRAVASTATIN [Concomitant]
     Indication: BLOOD CHOLESTEROL INCREASED
     Route: 048
     Dates: start: 2004
  5. FISH OIL [Concomitant]
     Indication: CARDIAC DISORDER
     Route: 048
  6. PROBIOTIC 10 [Concomitant]
     Dosage: DAILY
     Route: 048

REACTIONS (10)
  - Pneumonia [Recovered/Resolved]
  - Tongue discolouration [Unknown]
  - Pyrexia [Unknown]
  - Feeling abnormal [Unknown]
  - Chills [Unknown]
  - Candida infection [Not Recovered/Not Resolved]
  - Dysphonia [Recovering/Resolving]
  - Hypersensitivity [Not Recovered/Not Resolved]
  - Off label use [Unknown]
  - Intentional product misuse [Unknown]
